FAERS Safety Report 8585325-0 (Version None)
Quarter: 2012Q3

REPORT INFORMATION
  Report Type: 
  Country: None (occurrence: None)
  Receive Date: 20120810
  Receipt Date: 20120809
  Transmission Date: 20120928
  Serious: Yes (Hospitalization, Disabling, Other)
  Sender: FDA-Public Use
  Company Number: US-PFIZER INC-2012194783

PATIENT
  Age: 37 Year
  Sex: Male
  Weight: 109 kg

DRUGS (4)
  1. CHANTIX [Suspect]
     Dosage: 1 MG, 2X/DAY
     Dates: start: 20120101, end: 20120701
  2. CHANTIX [Suspect]
     Indication: SMOKING CESSATION THERAPY
     Dosage: 0.5 MG, DAILY
     Dates: start: 20120626, end: 20120101
  3. TYLENOL [Suspect]
     Indication: MIGRAINE
     Dosage: 1000 MG, AS NEEDED
     Dates: start: 20120701
  4. CHANTIX [Suspect]
     Dosage: SPLITTING THE 1MG TABLET
     Dates: start: 20120722, end: 20120725

REACTIONS (5)
  - WEIGHT INCREASED [None]
  - MIGRAINE [None]
  - DRUG INEFFECTIVE [None]
  - SPLENOMEGALY [None]
  - HAEMOLYTIC ANAEMIA [None]
